FAERS Safety Report 14970016 (Version 2)
Quarter: 2019Q1

REPORT INFORMATION
  Report Type: Report from Study
  Country: FR (occurrence: FR)
  Receive Date: 20180604
  Receipt Date: 20190116
  Transmission Date: 20190417
  Serious: Yes (Death, Hospitalization)
  Sender: FDA-Public Use
  Company Number: FR-SEATTLE GENETICS-2017SGN00930

PATIENT
  Age: 68 Year
  Sex: Male
  Weight: 61 kg

DRUGS (5)
  1. BRENTUXIMAB VEDOTIN-MPI [Suspect]
     Active Substance: BRENTUXIMAB VEDOTIN
     Indication: ANGIOIMMUNOBLASTIC T-CELL LYMPHOMA
     Dosage: 110 MG, UNK
     Route: 042
     Dates: start: 20170215, end: 20170922
  2. BRENTUXIMAB VEDOTIN-MPI [Suspect]
     Active Substance: BRENTUXIMAB VEDOTIN
     Dosage: 100 MG, UNK
     Route: 042
     Dates: start: 20170407
  3. BENDAMUSTINE [Concomitant]
     Active Substance: BENDAMUSTINE
     Dosage: UNK
     Route: 065
  4. BRENTUXIMAB VEDOTIN-MPI [Suspect]
     Active Substance: BRENTUXIMAB VEDOTIN
     Dosage: 90 MG, UNK
     Route: 042
     Dates: start: 20170519
  5. BENDAMUSTINE [Concomitant]
     Active Substance: BENDAMUSTINE
     Dosage: UNK
     Route: 065

REACTIONS (13)
  - Weight decreased [Unknown]
  - General physical health deterioration [Fatal]
  - Pseudomembranous colitis [Recovered/Resolved with Sequelae]
  - Rectal haemorrhage [Recovered/Resolved with Sequelae]
  - Pyrexia [Not Recovered/Not Resolved]
  - Arthralgia [Not Recovered/Not Resolved]
  - Off label use [Unknown]
  - Anal fistula [Recovering/Resolving]
  - Rectal abscess [Recovering/Resolving]
  - Oral fungal infection [Not Recovered/Not Resolved]
  - Starvation [Not Recovered/Not Resolved]
  - Thrombocytopenia [Recovering/Resolving]
  - Clostridium difficile infection [Recovering/Resolving]

NARRATIVE: CASE EVENT DATE: 201703
